FAERS Safety Report 4795714-8 (Version None)
Quarter: 2005Q4

REPORT INFORMATION
  Report Type: 
  Country: None (occurrence: None)
  Receive Date: 20051006
  Receipt Date: 20051006
  Transmission Date: 20060501
  Serious: Yes (Hospitalization)
  Sender: FDA-Public Use
  Company Number: None

PATIENT
  Sex: Male
  Weight: 97 kg

DRUGS (1)
  1. AUGMENTIN '500' [Suspect]
     Indication: SINUSITIS
     Dosage: 500MG TID PO
     Route: 048
     Dates: start: 20050513, end: 20050525

REACTIONS (4)
  - DIZZINESS [None]
  - HYPOTENSION [None]
  - PYREXIA [None]
  - RENAL FAILURE ACUTE [None]
